FAERS Safety Report 6721168-8 (Version None)
Quarter: 2010Q2

REPORT INFORMATION
  Report Type: 
  Country: None (occurrence: None)
  Receive Date: 20100512
  Receipt Date: 20100428
  Transmission Date: 20101027
  Serious: Yes (Life-Threatening, Hospitalization)
  Sender: FDA-Public Use
  Company Number: GB-RANBAXY-2010RR-33598

PATIENT
  Sex: Female

DRUGS (6)
  1. FLUOXETINE [Suspect]
     Dosage: 20 MG, UNK
     Route: 048
     Dates: start: 20100321, end: 20100326
  2. BENDROFLUAZIDE [Concomitant]
  3. CANDESARTAN [Concomitant]
  4. CO-DYDRAMOL [Concomitant]
  5. FRUSEMIDE [Concomitant]
  6. TRIMETHOPRIM [Concomitant]

REACTIONS (1)
  - HEPATIC STEATOSIS [None]
